FAERS Safety Report 9787221 (Version 1)
Quarter: 2013Q4

REPORT INFORMATION
  Report Type: Spontaneous
  Country: CA (occurrence: CA)
  Receive Date: 20131229
  Receipt Date: 20131229
  Transmission Date: 20140711
  Serious: Yes (Other)
  Sender: FDA-Public Use
  Company Number: CA-TEVA-453041USA

PATIENT
  Age: 77 Year
  Sex: Female

DRUGS (1)
  1. VENLAFAXINE [Suspect]
     Dosage: 37.5 MILLIGRAM DAILY;
     Route: 048

REACTIONS (2)
  - Coeliac disease [Unknown]
  - Abdominal discomfort [Unknown]
